FAERS Safety Report 5035631-1 (Version None)
Quarter: 2006Q2

REPORT INFORMATION
  Report Type: 
  Country: None (occurrence: None)
  Receive Date: 20060627
  Receipt Date: 20060616
  Transmission Date: 20061013
  Serious: Yes (Hospitalization)
  Sender: FDA-Public Use
  Company Number: FR-GLAXOSMITHKLINE-B0427974A

PATIENT
  Age: 44 Year
  Sex: Male

DRUGS (7)
  1. LAMICTAL [Suspect]
     Indication: EPILEPSY
     Route: 048
     Dates: start: 20060413, end: 20060502
  2. EPIVIR [Concomitant]
     Dosage: 300MG PER DAY
     Route: 065
  3. VIDEX [Concomitant]
     Dosage: 400MG PER DAY
     Route: 065
  4. PYRIMETHAMINE TAB [Concomitant]
     Dosage: 50MG PER DAY
     Route: 065
  5. SKENAN [Concomitant]
     Dosage: 80MG PER DAY
     Route: 065
  6. MORPHINE SULFATE [Concomitant]
     Dosage: 30MG AS REQUIRED
     Route: 065
  7. KALETRA [Concomitant]
     Dosage: 6TAB PER DAY
     Route: 048

REACTIONS (8)
  - CSF PROTEIN INCREASED [None]
  - HALLUCINATION [None]
  - HEADACHE [None]
  - HYPERSENSITIVITY [None]
  - MENINGITIS [None]
  - PHOTOPHOBIA [None]
  - PYREXIA [None]
  - SOMNOLENCE [None]
